FAERS Safety Report 4941373-0 (Version None)
Quarter: 2006Q1

REPORT INFORMATION
  Report Type: 
  Country: None (occurrence: None)
  Receive Date: 20060313
  Receipt Date: 20060302
  Transmission Date: 20060701
  Serious: Yes (Hospitalization)
  Sender: FDA-Public Use
  Company Number: US-MERCK-0603USA00626

PATIENT
  Age: 46 Year
  Sex: Female
  Weight: 102 kg

DRUGS (2)
  1. VIOXX [Suspect]
     Indication: OSTEOARTHRITIS
     Route: 048
     Dates: start: 19991201, end: 20040301
  2. VIOXX [Suspect]
     Indication: BACK PAIN
     Route: 048
     Dates: start: 19991201, end: 20040301

REACTIONS (7)
  - AORTIC EMBOLUS [None]
  - ARTHROPATHY [None]
  - CHEST PAIN [None]
  - DEEP VEIN THROMBOSIS [None]
  - DISORIENTATION [None]
  - DYSPNOEA [None]
  - PULMONARY EMBOLISM [None]
